FAERS Safety Report 9809228 (Version 1)
Quarter: 2014Q1

REPORT INFORMATION
  Report Type: Report from Study
  Country: FR (occurrence: FR)
  Receive Date: 20140110
  Receipt Date: 20140110
  Transmission Date: 20141002
  Serious: Yes (Other)
  Sender: FDA-Public Use
  Company Number: FR-CELGENEUS-056-C4047-14010206

PATIENT
  Age: 71 Year
  Sex: Male
  Weight: 72 kg

DRUGS (4)
  1. CC-4047 [Suspect]
     Indication: PLASMA CELL MYELOMA
     Route: 048
     Dates: start: 20130502, end: 20130624
  2. FENTANYL [Concomitant]
     Indication: PROPHYLAXIS
     Route: 045
  3. DEXAMETHASONE [Concomitant]
     Indication: PLASMA CELL MYELOMA
     Route: 065
  4. OXYCONTIN [Concomitant]
     Indication: PROPHYLAXIS
     Route: 065

REACTIONS (2)
  - Bundle branch block right [Unknown]
  - Plasma cell myeloma [Unknown]
